FAERS Safety Report 6020424-9 (Version None)
Quarter: 2008Q4

REPORT INFORMATION
  Report Type: 
  Country: None (occurrence: None)
  Receive Date: 20081222
  Receipt Date: 20081210
  Transmission Date: 20090506
  Serious: Yes (Life-Threatening)
  Sender: FDA-Public Use
  Company Number: 108597

PATIENT
  Sex: Male

DRUGS (3)
  1. NAPROXEN SODIUM [Suspect]
     Dosage: 500 MG BID ORAL
     Route: 048
     Dates: start: 20081027, end: 20081107
  2. PIROXICAM [Concomitant]
  3. IBUPROFEN TABLETS [Concomitant]

REACTIONS (2)
  - GASTROINTESTINAL HAEMORRHAGE [None]
  - HAEMOGLOBIN DECREASED [None]
